FAERS Safety Report 17125906 (Version 1)
Quarter: 2019Q4

REPORT INFORMATION
  Report Type: Spontaneous
  Country: US (occurrence: US)
  Receive Date: 20191208
  Receipt Date: 20191208
  Transmission Date: 20200122
  Serious: No
  Sender: FDA-Public Use
  Company Number: US-PRINSTON PHARMACEUTICAL INC.-2019PRN00618

PATIENT
  Sex: Female
  Weight: 88.44 kg

DRUGS (8)
  1. PAROXETINE. [Suspect]
     Active Substance: PAROXETINE
     Dosage: 30 MG, 1X/DAY
     Dates: start: 2018, end: 2018
  2. PAROXETINE. [Suspect]
     Active Substance: PAROXETINE
     Indication: BACK PAIN
     Dosage: 40 MG, 1X/DAY
     Route: 048
     Dates: start: 2018
  3. ATENOLOL. [Concomitant]
     Active Substance: ATENOLOL
  4. HYDROCHLOROTHIAZIDE. [Concomitant]
     Active Substance: HYDROCHLOROTHIAZIDE
  5. PAROXETINE. [Suspect]
     Active Substance: PAROXETINE
     Indication: BACK PAIN
     Dosage: 10 MG, 1X/DAY
     Route: 048
     Dates: start: 2018, end: 2018
  6. PAROXETINE. [Suspect]
     Active Substance: PAROXETINE
     Indication: STRESS
     Dosage: 20 MG, 1X/DAY
     Route: 048
     Dates: start: 2018, end: 2018
  7. AMLODIPINE [Concomitant]
     Active Substance: AMLODIPINE BESYLATE
  8. PAROXETINE. [Suspect]
     Active Substance: PAROXETINE
     Indication: STRESS

REACTIONS (1)
  - Drug ineffective for unapproved indication [Not Recovered/Not Resolved]

NARRATIVE: CASE EVENT DATE: 2019
